FAERS Safety Report 21420440 (Version 2)
Quarter: 2022Q4

REPORT INFORMATION
  Report Type: Spontaneous
  Country: IN (occurrence: None)
  Receive Date: 20221007
  Receipt Date: 20221014
  Transmission Date: 20230112
  Serious: Yes (Hospitalization, Other)
  Sender: FDA-Public Use
  Company Number: IN-Unichem Pharmaceuticals (USA) Inc-UCM202209-001018

PATIENT
  Age: 23 Year
  Sex: Female
  Weight: 50 kg

DRUGS (2)
  1. METFORMIN HYDROCHLORIDE [Suspect]
     Active Substance: METFORMIN HYDROCHLORIDE
     Indication: Overdose
     Dosage: 8 G
  2. GLIMEPIRIDE [Suspect]
     Active Substance: GLIMEPIRIDE
     Indication: Overdose
     Dosage: 32 MG

REACTIONS (9)
  - Generalised tonic-clonic seizure [Recovering/Resolving]
  - Loss of consciousness [Recovering/Resolving]
  - Hypoxia [Recovering/Resolving]
  - Blood gases abnormal [Recovering/Resolving]
  - Hypoglycaemia [Recovered/Resolved]
  - Overdose [Unknown]
  - Pyrexia [Recovering/Resolving]
  - Chills [Recovering/Resolving]
  - Irritability [Recovering/Resolving]
